FAERS Safety Report 8430059-6 (Version None)
Quarter: 2012Q2

REPORT INFORMATION
  Report Type: 
  Country: None (occurrence: None)
  Receive Date: 20120612
  Receipt Date: 20120529
  Transmission Date: 20120825
  Serious: Yes (Other)
  Sender: FDA-Public Use
  Company Number: US-ROCHE-1073548

PATIENT
  Sex: Female

DRUGS (3)
  1. IRINOTECAN HCL [Suspect]
     Indication: CERVIX CARCINOMA
     Dosage: ON DAY 1,2 AND 3
  2. AVASTIN [Suspect]
     Indication: CERVIX CARCINOMA
     Dosage: DAY 1
  3. CISPLATIN [Suspect]
     Indication: CERVIX CARCINOMA
     Dosage: DAY 1

REACTIONS (7)
  - NEUTROPENIA [None]
  - TOXICITY TO VARIOUS AGENTS [None]
  - GASTROINTESTINAL TOXICITY [None]
  - ANAEMIA [None]
  - THROMBOCYTOPENIA [None]
  - PAIN [None]
  - LEUKOPENIA [None]
